FAERS Safety Report 22094977 (Version 1)
Quarter: 2023Q1

REPORT INFORMATION
  Report Type: Spontaneous
  Country: US (occurrence: US)
  Receive Date: 20230314
  Receipt Date: 20230314
  Transmission Date: 20230418
  Serious: No
  Sender: FDA-Public Use
  Company Number: US-ELI_LILLY_AND_COMPANY-US202303005891

PATIENT
  Sex: Male

DRUGS (2)
  1. TRULICITY [Suspect]
     Active Substance: DULAGLUTIDE
     Indication: Product used for unknown indication
     Dosage: 1.5 MG, UNKNOWN
     Route: 058
  2. METFORMIN [Concomitant]
     Active Substance: METFORMIN HYDROCHLORIDE
     Indication: Product used for unknown indication
     Dosage: UNK UNK, UNKNOWN
     Route: 065

REACTIONS (12)
  - Anxiety [Unknown]
  - Flushing [Unknown]
  - Erythema [Unknown]
  - Ocular hyperaemia [Unknown]
  - Glossodynia [Unknown]
  - Disorientation [Unknown]
  - Nasal congestion [Unknown]
  - Abdominal pain upper [Unknown]
  - Heart rate decreased [Unknown]
  - Sleep disorder due to general medical condition, insomnia type [Unknown]
  - Tenderness [Unknown]
  - Abdominal rigidity [Unknown]
